FAERS Safety Report 4435052-6 (Version None)
Quarter: 2004Q3

REPORT INFORMATION
  Report Type: 
  Country: None (occurrence: None)
  Receive Date: 20040826
  Receipt Date: 20040826
  Transmission Date: 20050211
  Serious: No
  Sender: FDA-Public Use
  Company Number: None

PATIENT
  Age: 49 Year
  Sex: Female
  Weight: 70.7611 kg

DRUGS (2)
  1. XANAX [Suspect]
     Indication: ANXIETY
     Dosage: 1 MG PO PRN
     Route: 048
     Dates: start: 20010101
  2. ZOLOFT [Suspect]
     Indication: CLAUSTROPHOBIA
     Dosage: 100 MG PO QD
     Route: 048
     Dates: start: 20010101

REACTIONS (3)
  - ABDOMINAL DISTENSION [None]
  - ANURIA [None]
  - URINARY RETENTION [None]
